FAERS Safety Report 9385730 (Version 1)
Quarter: 2013Q3

REPORT INFORMATION
  Report Type: Spontaneous
  Country: US (occurrence: US)
  Receive Date: 20130705
  Receipt Date: 20130705
  Transmission Date: 20140515
  Serious: Yes (Hospitalization)
  Sender: FDA-Public Use
  Company Number: US-B.I. PHARMACEUTICALS,INC./RIDGEFIELD-2013-BI-18941BP

PATIENT
  Age: 73 Year
  Sex: Female
  Weight: 91 kg

DRUGS (6)
  1. PRADAXA [Suspect]
     Indication: ATRIAL FIBRILLATION
     Dosage: 300 MG
     Route: 048
     Dates: start: 2011
  2. TOPROL XL [Concomitant]
     Indication: HYPERTENSION
     Dosage: 50 MG
     Route: 048
  3. POTASSIUM [Concomitant]
     Dosage: 10 MEQ
     Route: 048
  4. DILTIAZEM XR [Concomitant]
     Indication: HYPERTENSION
     Dosage: 240 MG
     Route: 048
  5. TORSEMIDE [Concomitant]
     Indication: FLUID RETENTION
     Route: 048
  6. CALCIUM NASAN SPRAY [Concomitant]
     Dosage: FORMULATION: NASAL SPRAY
     Route: 045

REACTIONS (5)
  - Cartilage injury [Recovered/Resolved]
  - Back pain [Not Recovered/Not Resolved]
  - Muscle spasms [Not Recovered/Not Resolved]
  - Pain in extremity [Not Recovered/Not Resolved]
  - Diabetes mellitus [Not Recovered/Not Resolved]
